FAERS Safety Report 5876055-4 (Version None)
Quarter: 2008Q3

REPORT INFORMATION
  Report Type: 
  Country: None (occurrence: None)
  Receive Date: 20080910
  Receipt Date: 20080902
  Transmission Date: 20090109
  Serious: Yes (Hospitalization, Other)
  Sender: FDA-Public Use
  Company Number: US-ROCHE-564072

PATIENT
  Sex: Female
  Weight: 57.2 kg

DRUGS (8)
  1. PEG-INTERFERON A-2A (RO 25-8310) [Suspect]
     Dosage: FORM: PRE-FILLED SYRINGE
     Route: 065
     Dates: start: 20080328, end: 20080427
  2. PEG-INTERFERON A-2A (RO 25-8310) [Suspect]
     Route: 065
     Dates: start: 20080611
  3. RIBAVIRIN [Suspect]
     Route: 065
     Dates: start: 20080328, end: 20080427
  4. RIBAVIRIN [Suspect]
     Route: 065
     Dates: start: 20080611
  5. LEXAPRO [Concomitant]
     Indication: DEPRESSION
  6. ALPRAZOLAM [Concomitant]
     Dosage: ALPRAZOLAM XR
  7. LORATADINE [Concomitant]
  8. FERROUS SULFATE TAB [Concomitant]

REACTIONS (5)
  - DEHYDRATION [None]
  - MASS [None]
  - NAUSEA [None]
  - VOMITING [None]
  - WEIGHT DECREASED [None]
